FAERS Safety Report 15509145 (Version 1)
Quarter: 2018Q4

REPORT INFORMATION
  Report Type: Spontaneous
  Country: US (occurrence: US)
  Receive Date: 20181016
  Receipt Date: 20181016
  Transmission Date: 20190205
  Serious: Yes (Other)
  Sender: FDA-Public Use
  Company Number: None

PATIENT
  Age: 69 Year
  Sex: Male
  Weight: 117 kg

DRUGS (1)
  1. MORPHINE SULFATE. [Suspect]
     Active Substance: MORPHINE SULFATE
     Indication: PAIN MANAGEMENT
     Dosage: ?          OTHER FREQUENCY:ONE TIME;?
     Route: 037
     Dates: start: 20181015, end: 20181015

REACTIONS (5)
  - Product substitution issue [None]
  - Intercepted product administration error [None]
  - Physical product label issue [None]
  - Product outer packaging issue [None]
  - Intercepted product preparation error [None]

NARRATIVE: CASE EVENT DATE: 20181015
